FAERS Safety Report 4833189-0 (Version None)
Quarter: 2005Q4

REPORT INFORMATION
  Report Type: 
  Country: None (occurrence: None)
  Receive Date: 20051117
  Receipt Date: 20051109
  Transmission Date: 20060501
  Serious: Yes (Hospitalization)
  Sender: FDA-Public Use
  Company Number: FR_051107450

PATIENT
  Age: 60 Year
  Sex: Male

DRUGS (1)
  1. ALIMTA [Suspect]
     Indication: NON-SMALL CELL LUNG CANCER
     Dosage: 500 MG/M2 OTHER
     Dates: start: 20050620, end: 20051101

REACTIONS (2)
  - PLEURAL EFFUSION [None]
  - PNEUMONITIS [None]
